FAERS Safety Report 19449269 (Version 1)
Quarter: 2021Q2

REPORT INFORMATION
  Report Type: Spontaneous
  Country: US (occurrence: US)
  Receive Date: 20210622
  Receipt Date: 20210622
  Transmission Date: 20210717
  Serious: No
  Sender: FDA-Public Use
  Company Number: US-PFIZER INC-2021330880

PATIENT
  Age: 20 Year
  Sex: Male

DRUGS (2)
  1. ALPRAZOLAM. [Suspect]
     Active Substance: ALPRAZOLAM
     Indication: ANXIETY
     Dosage: 2 MG, DAILY
  2. BACLOFEN. [Suspect]
     Active Substance: BACLOFEN
     Indication: SEIZURE
     Dosage: UNK

REACTIONS (2)
  - Feeling abnormal [Unknown]
  - Sedation [Unknown]
